FAERS Safety Report 21824015 (Version 1)
Quarter: 2023Q1

REPORT INFORMATION
  Report Type: Spontaneous
  Country: CN (occurrence: CN)
  Receive Date: 20230105
  Receipt Date: 20230105
  Transmission Date: 20230417
  Serious: Yes (Life-Threatening, Other)
  Sender: FDA-Public Use
  Company Number: CN-BAYER-2023A001119

PATIENT
  Age: 51 Year
  Sex: Female
  Weight: 140 kg

DRUGS (2)
  1. ULTRAVIST [Suspect]
     Active Substance: IOPROMIDE
     Indication: Computerised tomogram neck
     Dosage: 50 ML, ONCE
     Route: 042
     Dates: start: 20221031, end: 20221031
  2. ULTRAVIST [Suspect]
     Active Substance: IOPROMIDE
     Indication: Thyroid disorder

REACTIONS (4)
  - Musculoskeletal stiffness [Recovering/Resolving]
  - Pruritus [Recovering/Resolving]
  - Vomiting [None]
  - Muscle spasms [None]

NARRATIVE: CASE EVENT DATE: 20221031
